FAERS Safety Report 8616734-9 (Version None)
Quarter: 2012Q3

REPORT INFORMATION
  Report Type: 
  Country: None (occurrence: None)
  Receive Date: 20120823
  Receipt Date: 20120820
  Transmission Date: 20120928
  Serious: Yes (Hospitalization, Other)
  Sender: FDA-Public Use
  Company Number: JP-PFIZER INC-2012203670

PATIENT
  Age: 78 Year
  Sex: Male

DRUGS (2)
  1. LYRICA [Suspect]
     Indication: HERPES ZOSTER
     Dosage: 150 MG/DAY
     Route: 048
  2. FAMVIR [Concomitant]
     Indication: HERPES ZOSTER

REACTIONS (3)
  - RENAL DISORDER [None]
  - ALTERED STATE OF CONSCIOUSNESS [None]
  - ANAEMIA [None]
